FAERS Safety Report 19068386 (Version 2)
Quarter: 2021Q3

REPORT INFORMATION
  Report Type: Spontaneous
  Country: US (occurrence: US)
  Receive Date: 20210329
  Receipt Date: 20210911
  Transmission Date: 20211014
  Serious: Yes (Hospitalization, Other)
  Sender: FDA-Public Use
  Company Number: US-EPICPHARMA-US-2021EPCLIT00309

PATIENT
  Sex: Male

DRUGS (8)
  1. ACICLOVIR [Interacting]
     Active Substance: ACYCLOVIR
     Indication: ANTIBIOTIC THERAPY
     Route: 065
  2. VENLAFAXINE [Suspect]
     Active Substance: VENLAFAXINE HYDROCHLORIDE
     Indication: FOETAL EXPOSURE DURING PREGNANCY
     Route: 064
  3. QUETIAPINE. [Suspect]
     Active Substance: QUETIAPINE
     Indication: FOETAL EXPOSURE DURING PREGNANCY
     Route: 064
  4. AMPICILLIN [Interacting]
     Active Substance: AMPICILLIN
     Indication: ANTIBIOTIC THERAPY
     Route: 065
  5. LORAZEPAM. [Interacting]
     Active Substance: LORAZEPAM
     Indication: SEIZURE
     Route: 042
  6. BUPROPION HYDROCHLORIDE. [Suspect]
     Active Substance: BUPROPION HYDROCHLORIDE
     Indication: FOETAL EXPOSURE DURING PREGNANCY
     Route: 064
  7. GENTAMICIN. [Interacting]
     Active Substance: GENTAMICIN
     Indication: ANTIBIOTIC THERAPY
     Route: 065
  8. GABAPENTIN. [Concomitant]
     Active Substance: GABAPENTIN
     Indication: FOETAL EXPOSURE DURING PREGNANCY
     Route: 064

REACTIONS (7)
  - Encephalopathy neonatal [Recovered/Resolved]
  - Hyperreflexia [Recovered/Resolved]
  - Premature baby [Unknown]
  - Potentiating drug interaction [Unknown]
  - Toxicity to various agents [Unknown]
  - Seizure [Recovered/Resolved]
  - Hypertonia neonatal [Recovered/Resolved]
